FAERS Safety Report 6252138-4 (Version None)
Quarter: 2009Q2

REPORT INFORMATION
  Report Type: 
  Country: None (occurrence: None)
  Receive Date: 20090630
  Receipt Date: 20070901
  Transmission Date: 20091009
  Serious: Yes (Death, Hospitalization)
  Sender: FDA-Public Use
  Company Number: US-ROCHE-639487

PATIENT
  Sex: Male

DRUGS (5)
  1. ENFUVIRTIDE [Suspect]
     Indication: HIV INFECTION
     Route: 065
     Dates: start: 20070502, end: 20071030
  2. PREZISTA [Concomitant]
     Dates: start: 20070328, end: 20071105
  3. NORVIR [Concomitant]
     Dates: start: 20070411, end: 20071105
  4. TRUVADA [Concomitant]
     Dosage: DOSE: 1 TABLET, FREQUENCY: DAILY
     Dates: start: 20070411, end: 20071105
  5. MEPRON [Concomitant]
     Dosage: DOSE: 5 CC DAILY
     Dates: start: 20070502, end: 20071105

REACTIONS (1)
  - ANAL CANCER [None]
